FAERS Safety Report 18353909 (Version 3)
Quarter: 2020Q4

REPORT INFORMATION
  Report Type: Spontaneous
  Country: PL (occurrence: PL)
  Receive Date: 20201006
  Receipt Date: 20201129
  Transmission Date: 20210114
  Serious: Yes (Other)
  Sender: FDA-Public Use
  Company Number: PL-BEH-2020123120

PATIENT
  Age: 27 Year
  Sex: Female
  Weight: 79 kg

DRUGS (5)
  1. RHOPHYLAC [Suspect]
     Active Substance: HUMAN RHO(D) IMMUNE GLOBULIN
     Indication: RHESUS INCOMPATIBILITY
     Dosage: 300 IU, THE ENTIRE PRE-FILLED SYRINGE POSSIBLE
     Route: 030
     Dates: start: 20200902
  2. UROSEPT [PIPEMIDIC ACID] [Concomitant]
     Indication: PROPHYLAXIS
  3. UROSEPT [PIPEMIDIC ACID] [Concomitant]
     Indication: PROPHYLAXIS
  4. RHOPHYLAC [Suspect]
     Active Substance: HUMAN RHO(D) IMMUNE GLOBULIN
     Indication: RHESUS INCOMPATIBILITY
     Dosage: 300 IU, THE ENTIRE PRE-FILLED SYRINGE POSSIBLE
     Route: 030
     Dates: start: 20200902
  5. MACMIROR [Concomitant]
     Dosage: AFTER 20TH WEEK OF PREGNANCY
     Route: 065
     Dates: start: 202007, end: 202008

REACTIONS (5)
  - Exposure during pregnancy [Unknown]
  - Antibody test positive [Unknown]
  - No adverse event [Unknown]
  - Asthenia [Recovered/Resolved]
  - Injection site pain [Recovered/Resolved]

NARRATIVE: CASE EVENT DATE: 20200902
